FAERS Safety Report 5826632-1 (Version None)
Quarter: 2008Q3

REPORT INFORMATION
  Report Type: 
  Country: None (occurrence: None)
  Receive Date: 20080730
  Receipt Date: 20080721
  Transmission Date: 20090109
  Serious: Yes (Other)
  Sender: FDA-Public Use
  Company Number: US-JNJFOC-20080706544

PATIENT
  Age: 60 Year
  Sex: Female

DRUGS (3)
  1. INTELENCE [Suspect]
     Indication: HIV INFECTION
     Route: 048
  2. ISENTRESS [Suspect]
     Indication: HIV INFECTION
  3. MARAVIROC [Suspect]
     Indication: HIV INFECTION

REACTIONS (1)
  - MYELODYSPLASTIC SYNDROME [None]
